FAERS Safety Report 18255383 (Version 1)
Quarter: 2020Q3

REPORT INFORMATION
  Report Type: Spontaneous
  Country: IT (occurrence: IT)
  Receive Date: 20200910
  Receipt Date: 20200910
  Transmission Date: 20201103
  Serious: Yes (Hospitalization)
  Sender: FDA-Public Use
  Company Number: IT-UCBSA-2020035263

PATIENT
  Age: 19 Year
  Sex: Female

DRUGS (4)
  1. PANTOPRAZOLE [Suspect]
     Active Substance: PANTOPRAZOLE
     Indication: DRUG ABUSE
     Dosage: 80 MG TOTAL DOSE IN A DAY (ABUSE/MISUSE)
     Route: 048
     Dates: start: 20180305, end: 20180305
  2. KEPPRA [Suspect]
     Active Substance: LEVETIRACETAM
     Indication: DRUG ABUSE
     Dosage: (KEPPRA 500 MG) 10 DOSGAE FORM TOATAL IN A DAY (ABUSE/MISUSE)
     Route: 048
     Dates: start: 20180305, end: 20180305
  3. DEBRUM [Suspect]
     Active Substance: MEDAZEPAM\TRIMEBUTINE MALEATE
     Indication: DRUG ABUSE
     Dosage: 10 DOSAGE FORM TOTAL DAILY DOSE (ABUSE/MISUSE)
     Route: 048
     Dates: start: 20180305, end: 20180305
  4. CITALOPRAM [Concomitant]
     Active Substance: CITALOPRAM HYDROBROMIDE
     Indication: DEPRESSION
     Dosage: 7 [DRP] (DROP (1/12 MILLILITRE)) DAILY
     Route: 048

REACTIONS (5)
  - Depressed mood [Recovering/Resolving]
  - Vertigo [Recovering/Resolving]
  - Drug abuse [Unknown]
  - Product use in unapproved indication [Unknown]
  - Overdose [Unknown]

NARRATIVE: CASE EVENT DATE: 20180305
